FAERS Safety Report 6214014-2 (Version None)
Quarter: 2009Q2

REPORT INFORMATION
  Report Type: 
  Country: None (occurrence: None)
  Receive Date: 20090601
  Receipt Date: 20090601
  Transmission Date: 20091009
  Serious: Yes (Life-Threatening, Other)
  Sender: FDA-Public Use
  Company Number: None

PATIENT
  Age: 58 Year
  Sex: Female
  Weight: 82.1011 kg

DRUGS (1)
  1. CHANTIX [Suspect]
     Indication: SMOKING CESSATION THERAPY
     Dosage: 1 TAB Q 12 HRS PO
     Route: 048
     Dates: start: 20081120, end: 20090520

REACTIONS (10)
  - ACTIVITIES OF DAILY LIVING IMPAIRED [None]
  - ANGIOEDEMA [None]
  - APATHY [None]
  - ASTHENIA [None]
  - BLUNTED AFFECT [None]
  - FALL [None]
  - HYPOKINESIA [None]
  - LOSS OF CONSCIOUSNESS [None]
  - MENTAL DISABILITY [None]
  - PUPILS UNEQUAL [None]
